FAERS Safety Report 5726787-3 (Version None)
Quarter: 2008Q2

REPORT INFORMATION
  Report Type: 
  Country: None (occurrence: None)
  Receive Date: 20080502
  Receipt Date: 20080425
  Transmission Date: 20081010
  Serious: Yes (Other)
  Sender: FDA-Public Use
  Company Number: US-PFIZER INC-2008023135

PATIENT
  Sex: Female
  Weight: 106.6 kg

DRUGS (7)
  1. GLUCOTROL XL [Suspect]
     Indication: DIABETES MELLITUS
  2. PROZAC [Concomitant]
  3. COREG [Concomitant]
  4. NORVASC [Concomitant]
  5. ALLOPURINOL [Concomitant]
  6. SITAGLIPTIN [Concomitant]
  7. LIPITOR [Concomitant]

REACTIONS (5)
  - DIABETES MELLITUS INADEQUATE CONTROL [None]
  - SPINAL FUSION SURGERY [None]
  - UNEVALUABLE EVENT [None]
  - VISION BLURRED [None]
  - VISUAL ACUITY REDUCED [None]
